FAERS Safety Report 25228165 (Version 1)
Quarter: 2025Q2

REPORT INFORMATION
  Report Type: Spontaneous
  Country: IT (occurrence: IT)
  Receive Date: 20250423
  Receipt Date: 20250423
  Transmission Date: 20250717
  Serious: Yes (Hospitalization)
  Sender: TEVA
  Company Number: IT-TEVA-VS-3323451

PATIENT
  Age: 62 Year
  Sex: Male

DRUGS (1)
  1. OLMESARTAN [Suspect]
     Active Substance: OLMESARTAN
     Indication: Hypertension
     Route: 065

REACTIONS (4)
  - Acute kidney injury [Recovering/Resolving]
  - Syncope [Recovering/Resolving]
  - Sprue-like enteropathy [Recovering/Resolving]
  - Hypotension [Recovering/Resolving]
